FAERS Safety Report 4874750-7 (Version None)
Quarter: 2006Q1

REPORT INFORMATION
  Report Type: 
  Country: None (occurrence: None)
  Receive Date: 20060105
  Receipt Date: 20060105
  Transmission Date: 20060701
  Serious: Yes (Life-Threatening, Hospitalization)
  Sender: FDA-Public Use
  Company Number: None

PATIENT
  Age: 63 Year
  Sex: Male
  Weight: 65.7716 kg

DRUGS (1)
  1. HUMIRA [Suspect]
     Dosage: 40 MG QOW SQ
     Route: 058
     Dates: start: 20041225, end: 20051126

REACTIONS (6)
  - HISTOPLASMOSIS [None]
  - LUNG INFILTRATION [None]
  - NAUSEA [None]
  - PERITONEAL EFFUSION [None]
  - PLEURAL EFFUSION [None]
  - PLEURISY [None]
